FAERS Safety Report 5102709-3 (Version None)
Quarter: 2006Q3

REPORT INFORMATION
  Report Type: 
  Country: None (occurrence: None)
  Receive Date: 20060907
  Receipt Date: 20060824
  Transmission Date: 20061208
  Serious: Yes (Hospitalization)
  Sender: FDA-Public Use
  Company Number: DEU-2006-0002433

PATIENT
  Age: 47 Year
  Sex: Male

DRUGS (9)
  1. MORPHINE SULFATE [Suspect]
     Indication: PAIN
     Dosage: 40 MG, DAILY, ORAL
     Route: 048
     Dates: start: 20060401
  2. NEURONTIN [Suspect]
     Indication: PAIN
     Dosage: 3600 MG, DAILY, ORAL
     Route: 048
     Dates: start: 20021201, end: 20060601
  3. ZURCAL (PANTOPRAZOLE SODIUM) [Concomitant]
  4. SURMONTIL [Concomitant]
  5. IMOVANE (ZOPICLONE) [Concomitant]
  6. ZOLPIDEM TARTRATE [Concomitant]
  7. ACIDUM FOLICUM STREULI (FOLIC ACID) [Concomitant]
  8. SUPRADYN (VITAMINS NOS, MAGNESIUM PHOSPHATE MONOBASIC, ZINC SULFATE, M [Concomitant]
  9. CREON [Concomitant]

REACTIONS (6)
  - ANAEMIA [None]
  - DRUG INTERACTION [None]
  - HIATUS HERNIA [None]
  - OESOPHAGITIS ULCERATIVE [None]
  - PARAPARESIS [None]
  - UPPER GASTROINTESTINAL HAEMORRHAGE [None]
